FAERS Safety Report 8085717-2 (Version None)
Quarter: 2012Q1

REPORT INFORMATION
  Report Type: 
  Country: None (occurrence: None)
  Receive Date: 20120128
  Receipt Date: 20110608
  Transmission Date: 20120608
  Serious: No
  Sender: FDA-Public Use
  Company Number: US-ABBOTT-11P-163-0731135-00

PATIENT
  Age: 30 Year
  Sex: Female

DRUGS (6)
  1. VITAMIN TAB [Concomitant]
     Indication: PRODUCT USED FOR UNKNOWN INDICATION
  2. HUMIRA [Suspect]
     Indication: CROHN'S DISEASE
     Dates: start: 20110101, end: 20110321
  3. PHENERGAN [Concomitant]
     Indication: NAUSEA
  4. HUMIRA [Suspect]
     Dates: start: 20110509
  5. PREDNISONE TAB [Concomitant]
     Indication: PRODUCT USED FOR UNKNOWN INDICATION
     Dosage: TAPERING OFF DOSE
  6. VICODIN [Concomitant]
     Indication: PAIN

REACTIONS (4)
  - PHOTOPHOBIA [None]
  - VOMITING [None]
  - CROHN'S DISEASE [None]
  - HEADACHE [None]
